FAERS Safety Report 6548000-X (Version None)
Quarter: 2010Q1

REPORT INFORMATION
  Report Type: 
  Country: None (occurrence: None)
  Receive Date: 20100124
  Receipt Date: 20091214
  Transmission Date: 20100710
  Serious: No
  Sender: FDA-Public Use
  Company Number: US-ALEXION-A200901083

PATIENT
  Sex: Male
  Weight: 88.435 kg

DRUGS (17)
  1. SOLIRIS [Suspect]
     Indication: PAROXYSMAL NOCTURNAL HAEMOGLOBINURIA
     Dosage: 600 MG, QW
     Route: 042
     Dates: start: 20090323, end: 20090401
  2. SOLIRIS [Suspect]
     Dosage: 900 MG, Q2W
     Route: 042
     Dates: start: 20090420
  3. AMBIEN [Concomitant]
     Indication: INSOMNIA
     Dosage: 10 MG, QHS PRN
     Route: 048
  4. CLARITIN                           /00917501/ [Concomitant]
     Dosage: 10 MG, QD
  5. COZAAR [Concomitant]
     Dosage: 100 MG, QD
     Route: 048
  6. DILAUDID [Concomitant]
     Indication: PAIN
     Dosage: Q4-6H 4 MG, PRN
     Route: 048
  7. DOCUSATE SODIUM [Concomitant]
     Dosage: 100 MG, BID
     Route: 048
  8. FOLIC ACID [Concomitant]
     Dosage: 1 MG, QD
     Route: 048
  9. FUROSEMIDE [Concomitant]
     Dosage: 40 MG, QD
     Route: 048
  10. GABAPENTIN [Concomitant]
     Dosage: 300 MG, UNK
     Route: 048
  11. GLUCOSE [Concomitant]
     Dosage: 4 G, QD
     Route: 048
  12. MECLIZINE                          /00072801/ [Concomitant]
     Dosage: 25 MG, QD PRN
     Route: 048
  13. PAROXETINE HYDROCHLORIDE [Concomitant]
     Dosage: 20 MG, QD
     Route: 048
  14. PIROXICAM [Concomitant]
     Dosage: 20 MG, QD
     Route: 048
  15. SIMVASTATIN [Concomitant]
     Dosage: 40 MG, QD HS
     Route: 048
  16. TERAZOSIN HCL [Concomitant]
     Dosage: 5 MG, QD HS
     Route: 048
  17. VICODIN [Concomitant]
     Indication: PAIN
     Dosage: 1 TAB Q6H PRN
     Route: 048

REACTIONS (3)
  - DYSPHAGIA [None]
  - DYSPNOEA [None]
  - MUSCULOSKELETAL CHEST PAIN [None]
